FAERS Safety Report 24904538 (Version 1)
Quarter: 2025Q1

REPORT INFORMATION
  Report Type: Spontaneous
  Country: US (occurrence: US)
  Receive Date: 20250130
  Receipt Date: 20250130
  Transmission Date: 20250409
  Serious: No
  Sender: BAYER HEALTHCARE PHARMACEUTICALS INC.
  Company Number: US-BAYER-2025A014257

PATIENT
  Sex: Female

DRUGS (3)
  1. KYLEENA [Suspect]
     Active Substance: LEVONORGESTREL
     Indication: Contraception
     Dosage: 17.5?G/DAY
     Route: 015
     Dates: start: 202409
  2. WAKIX [Concomitant]
     Active Substance: PITOLISANT HYDROCHLORIDE
  3. SUBLOCADE [Concomitant]
     Active Substance: BUPRENORPHINE

REACTIONS (1)
  - Weight decreased [None]
